FAERS Safety Report 5878579-2 (Version None)
Quarter: 2008Q3

REPORT INFORMATION
  Report Type: 
  Country: None (occurrence: None)
  Receive Date: 20080909
  Receipt Date: 20080904
  Transmission Date: 20090109
  Serious: Yes (Other)
  Sender: FDA-Public Use
  Company Number: GXKR2008DE08446

PATIENT

DRUGS (1)
  1. BUSP (NGX) (BUSPIRONE) TABLET [Suspect]
     Dosage: , INHALATION
     Route: 055

REACTIONS (2)
  - INCORRECT ROUTE OF DRUG ADMINISTRATION [None]
  - INTENTIONAL DRUG MISUSE [None]
